FAERS Safety Report 9292522 (Version 1)
Quarter: 2013Q2

REPORT INFORMATION
  Report Type: Other
  Country: GB (occurrence: GB)
  Receive Date: 20130516
  Receipt Date: 20130516
  Transmission Date: 20140414
  Serious: Yes (Hospitalization)
  Sender: FDA-Public Use
  Company Number: GB-BRISTOL-MYERS SQUIBB COMPANY-18870329

PATIENT
  Age: 45 Year
  Sex: Male

DRUGS (1)
  1. ATAZANAVIR [Suspect]
     Indication: ANTIRETROVIRAL THERAPY
     Dates: start: 2009, end: 201202

REACTIONS (1)
  - Atrial fibrillation [Recovered/Resolved]
